FAERS Safety Report 19825801 (Version 1)
Quarter: 2021Q3

REPORT INFORMATION
  Report Type: Report from Study
  Country: GB (occurrence: GB)
  Receive Date: 20210914
  Receipt Date: 20210914
  Transmission Date: 20211014
  Serious: Yes (Hospitalization, Other)
  Sender: FDA-Public Use
  Company Number: GB-ORION CORPORATION ORION PHARMA-21_00015715

PATIENT
  Age: 49 Year
  Sex: Female

DRUGS (2)
  1. METHOTREXATE (TRADE NAME UNKNOWN) [Suspect]
     Active Substance: METHOTREXATE
     Indication: PRODUCT USED FOR UNKNOWN INDICATION
     Route: 065
  2. HYRIMOZ [Suspect]
     Active Substance: ADALIMUMAB-ADAZ
     Indication: PRODUCT USED FOR UNKNOWN INDICATION
     Dosage: DOSE: 40 MG/0.8 ML
     Route: 065

REACTIONS (11)
  - Hyperkeratosis [Unknown]
  - Vomiting projectile [Unknown]
  - Drug-induced liver injury [Unknown]
  - Psoriatic arthropathy [Unknown]
  - Illness [Unknown]
  - Muscle spasms [Unknown]
  - Urinary tract infection [Unknown]
  - Herpes zoster [Unknown]
  - Blood iron increased [Unknown]
  - Injury [Unknown]
  - Weight decreased [Unknown]
